FAERS Safety Report 19723620 (Version 2)
Quarter: 2021Q3

REPORT INFORMATION
  Report Type: Spontaneous
  Country: US (occurrence: US)
  Receive Date: 20210819
  Receipt Date: 20210824
  Transmission Date: 20211014
  Serious: Yes (Hospitalization)
  Sender: FDA-Public Use
  Company Number: US-TEVA-2021-US-1942292

PATIENT
  Age: 90 Year
  Sex: Female

DRUGS (3)
  1. ASPIRIN. [Interacting]
     Active Substance: ASPIRIN
     Indication: ANTIPLATELET THERAPY
     Route: 065
  2. WARFARIN [Suspect]
     Active Substance: WARFARIN
     Indication: ATRIAL FIBRILLATION
     Route: 065
  3. HEPARIN [Suspect]
     Active Substance: HEPARIN SODIUM
     Indication: ANTICOAGULANT THERAPY
     Route: 041

REACTIONS (6)
  - Compartment syndrome [Recovering/Resolving]
  - Food interaction [Unknown]
  - Peroneal nerve palsy [Not Recovered/Not Resolved]
  - Anaemia [Recovering/Resolving]
  - Drug interaction [Unknown]
  - Anticoagulation drug level above therapeutic [Unknown]
